FAERS Safety Report 6816695-9 (Version None)
Quarter: 2010Q3

REPORT INFORMATION
  Report Type: 
  Country: None (occurrence: None)
  Receive Date: 20100706
  Receipt Date: 20100625
  Transmission Date: 20110219
  Serious: Yes (Hospitalization)
  Sender: FDA-Public Use
  Company Number: US-JNJFOC-20100608399

PATIENT
  Sex: Female

DRUGS (8)
  1. DURAGESIC-100 [Suspect]
     Indication: RADICULAR PAIN
     Dosage: ONCE IN 72 HOURS
     Route: 062
  2. DURAGESIC-100 [Suspect]
     Dosage: ONCE EVERY72 HOURS
     Route: 062
  3. FENTANYL-100 [Suspect]
     Indication: RADICULAR PAIN
     Dosage: ONCE IN 72 HOURS
     Route: 062
  4. DURAGESIC-100 [Suspect]
     Dosage: ONCE IN 72 HOURS
     Route: 062
  5. ULTRAM [Concomitant]
     Indication: PAIN
     Route: 048
  6. ATENOLOL [Concomitant]
     Indication: HYPERTENSION
     Route: 048
  7. UNKNOWN MEDICATION [Concomitant]
     Indication: FLUID RETENTION
     Route: 048
  8. CHOLESTEROL PILL [Concomitant]
     Indication: BLOOD CHOLESTEROL INCREASED
     Route: 048

REACTIONS (4)
  - ADVERSE DRUG REACTION [None]
  - CARDIAC DISORDER [None]
  - PERICARDIAL EFFUSION [None]
  - WRONG TECHNIQUE IN DRUG USAGE PROCESS [None]
